FAERS Safety Report 6100636-6 (Version None)
Quarter: 2009Q1

REPORT INFORMATION
  Report Type: 
  Country: None (occurrence: None)
  Receive Date: 20090227
  Receipt Date: 20090227
  Transmission Date: 20090719
  Serious: No
  Sender: FDA-Public Use
  Company Number: None

PATIENT
  Age: 83 Year
  Sex: Male
  Weight: 85.73 kg

DRUGS (2)
  1. ETODOLAC [Suspect]
     Indication: OEDEMA PERIPHERAL
     Dosage: 400 MG BID PO
     Route: 048
     Dates: start: 20081112, end: 20090112
  2. ETODOLAC [Suspect]
     Indication: PAIN IN EXTREMITY
     Dosage: 400 MG BID PO
     Route: 048
     Dates: start: 20081112, end: 20090112

REACTIONS (3)
  - ABDOMINAL DISCOMFORT [None]
  - GASTRIC HAEMORRHAGE [None]
  - GASTROINTESTINAL HAEMORRHAGE [None]
